FAERS Safety Report 8901723 (Version 1)
Quarter: 2012Q4

REPORT INFORMATION
  Report Type: Spontaneous
  Country: US (occurrence: None)
  Receive Date: 20121105
  Receipt Date: 20121105
  Transmission Date: 20130627
  Serious: Yes (Hospitalization)
  Sender: FDA-Public Use
  Company Number: 2012SUN00199

PATIENT
  Age: 34 Year
  Sex: Female

DRUGS (4)
  1. ZOLPIDEM TARTRATE [Suspect]
     Indication: DRUG USE FOR UNKNOWN INDICATION
     Dosage: 60 x 10 mg, oral
     Route: 048
  2. OXYCODONE HCL [Suspect]
     Dosage: 90 x 15 mg, oral
     Route: 048
  3. LORAZEPAM (LORAZEPAM) [Suspect]
     Dosage: 120 x 1 mg
     Route: 048
  4. FENTANYL [Suspect]
     Route: 023

REACTIONS (6)
  - Stress cardiomyopathy [None]
  - Overdose [None]
  - Unresponsive to stimuli [None]
  - Blood pressure increased [None]
  - Heart rate increased [None]
  - Pupillary reflex impaired [None]
